FAERS Safety Report 14700570 (Version 5)
Quarter: 2020Q1

REPORT INFORMATION
  Report Type: Spontaneous
  Country: US (occurrence: US)
  Receive Date: 20180330
  Receipt Date: 20200205
  Transmission Date: 20200409
  Serious: Yes (Hospitalization, Disabling, Other)
  Sender: FDA-Public Use
  Company Number: US-ASTRAZENECA-2018SE37571

PATIENT
  Age: 26 Year
  Sex: Female
  Weight: 81.6 kg

DRUGS (39)
  1. PRILOSEC [Suspect]
     Active Substance: OMEPRAZOLE MAGNESIUM
     Indication: ACID PEPTIC DISEASE
     Route: 048
     Dates: start: 20030101, end: 20150801
  2. FUROSEMIDE. [Concomitant]
     Active Substance: FUROSEMIDE
  3. INSULIN [Concomitant]
     Active Substance: INSULIN NOS
     Indication: DIABETES MELLITUS
     Dates: start: 20150918
  4. METHOCARBAMOL. [Concomitant]
     Active Substance: METHOCARBAMOL
     Indication: MUSCLE RELAXANT THERAPY
     Dates: start: 20150918
  5. PRILOSEC [Suspect]
     Active Substance: OMEPRAZOLE MAGNESIUM
     Indication: GASTROOESOPHAGEAL REFLUX DISEASE
     Route: 048
     Dates: start: 20030101, end: 20150801
  6. PRILOSEC [Suspect]
     Active Substance: OMEPRAZOLE MAGNESIUM
     Indication: ACID PEPTIC DISEASE
     Route: 048
     Dates: start: 20030301, end: 20150801
  7. PRILOSEC [Suspect]
     Active Substance: OMEPRAZOLE MAGNESIUM
     Indication: ACID PEPTIC DISEASE
     Dosage: GENERIC
     Route: 065
     Dates: start: 2006, end: 2019
  8. PREVACID [Suspect]
     Active Substance: LANSOPRAZOLE
     Indication: GASTROOESOPHAGEAL REFLUX DISEASE
     Route: 065
     Dates: start: 20030301, end: 20150801
  9. PREVACID 24 HR [Suspect]
     Active Substance: LANSOPRAZOLE
     Indication: ACID PEPTIC DISEASE
     Route: 065
     Dates: start: 200301, end: 201508
  10. CALCIUM ACETATE. [Concomitant]
     Active Substance: CALCIUM ACETATE
     Indication: BLOOD PHOSPHORUS
     Dates: start: 20150918
  11. APIXABAN [Concomitant]
     Active Substance: APIXABAN
     Indication: THROMBOSIS
     Dates: start: 20150918
  12. HEPARIN [Concomitant]
     Active Substance: HEPARIN SODIUM
     Dates: start: 2019
  13. LIDOCAINE. [Concomitant]
     Active Substance: LIDOCAINE
     Dates: start: 2019
  14. LABETALOL [Concomitant]
     Active Substance: LABETALOL\LABETALOL HYDROCHLORIDE
     Dates: start: 2019
  15. PRILOSEC [Suspect]
     Active Substance: OMEPRAZOLE MAGNESIUM
     Indication: GASTROOESOPHAGEAL REFLUX DISEASE
     Route: 048
     Dates: start: 20030301, end: 20150801
  16. PREVACID [Suspect]
     Active Substance: LANSOPRAZOLE
     Indication: ACID PEPTIC DISEASE
     Route: 065
     Dates: start: 20030101, end: 20150801
  17. AMLODIPINE [Concomitant]
     Active Substance: AMLODIPINE BESYLATE
  18. CARVEDILOL. [Concomitant]
     Active Substance: CARVEDILOL
     Indication: BLOOD PRESSURE MEASUREMENT
     Dates: start: 20150918
  19. GABAPENTIN. [Concomitant]
     Active Substance: GABAPENTIN
     Indication: NEURALGIA
     Dates: start: 20150918
  20. BUPIVACAINE. [Concomitant]
     Active Substance: BUPIVACAINE
     Dates: start: 2019
  21. NEXIUM [Suspect]
     Active Substance: ESOMEPRAZOLE MAGNESIUM
     Indication: ACID PEPTIC DISEASE
     Route: 048
     Dates: start: 20030301, end: 20150801
  22. PRILOSEC OTC [Suspect]
     Active Substance: OMEPRAZOLE MAGNESIUM
     Indication: GASTROOESOPHAGEAL REFLUX DISEASE
     Route: 048
     Dates: start: 200301, end: 201508
  23. PREVACID [Suspect]
     Active Substance: LANSOPRAZOLE
     Indication: ACID PEPTIC DISEASE
     Route: 065
     Dates: start: 20030301, end: 20150801
  24. PREVACID 24 HR [Suspect]
     Active Substance: LANSOPRAZOLE
     Indication: GASTROOESOPHAGEAL REFLUX DISEASE
     Route: 065
     Dates: end: 201502
  25. NEXIUM [Suspect]
     Active Substance: ESOMEPRAZOLE MAGNESIUM
     Indication: GASTROOESOPHAGEAL REFLUX DISEASE
     Route: 048
     Dates: start: 20030301, end: 20150801
  26. PREVACID 24 HR [Suspect]
     Active Substance: LANSOPRAZOLE
     Indication: GASTROOESOPHAGEAL REFLUX DISEASE
     Route: 065
     Dates: start: 200301, end: 201508
  27. PREVACID 24 HR [Suspect]
     Active Substance: LANSOPRAZOLE
     Indication: ACID PEPTIC DISEASE
     Route: 065
     Dates: end: 201502
  28. HYDRALAZINE [Concomitant]
     Active Substance: HYDRALAZINE HYDROCHLORIDE
  29. HYDROCODONE [Concomitant]
     Active Substance: HYDROCODONE
     Indication: PAIN
     Dates: start: 20150918
  30. FAMOTIDINE. [Concomitant]
     Active Substance: FAMOTIDINE
     Dates: start: 2019
  31. PAPAVERINE [Concomitant]
     Active Substance: PAPAVERINE
     Dates: start: 2019
  32. NEXIUM [Suspect]
     Active Substance: ESOMEPRAZOLE MAGNESIUM
     Indication: ACID PEPTIC DISEASE
     Route: 048
     Dates: start: 20030101, end: 20150801
  33. PRILOSEC OTC [Suspect]
     Active Substance: OMEPRAZOLE MAGNESIUM
     Indication: ACID PEPTIC DISEASE
     Route: 048
  34. NEXIUM [Suspect]
     Active Substance: ESOMEPRAZOLE MAGNESIUM
     Indication: GASTROOESOPHAGEAL REFLUX DISEASE
     Route: 048
     Dates: start: 20030101, end: 20150801
  35. PRILOSEC [Suspect]
     Active Substance: OMEPRAZOLE MAGNESIUM
     Indication: GASTROOESOPHAGEAL REFLUX DISEASE
     Dosage: GENERIC
     Route: 065
     Dates: start: 2006, end: 2019
  36. PRILOSEC OTC [Suspect]
     Active Substance: OMEPRAZOLE MAGNESIUM
     Indication: ACID PEPTIC DISEASE
     Route: 048
     Dates: start: 200301, end: 201508
  37. PRILOSEC OTC [Suspect]
     Active Substance: OMEPRAZOLE MAGNESIUM
     Indication: GASTROOESOPHAGEAL REFLUX DISEASE
     Route: 048
  38. PREVACID [Suspect]
     Active Substance: LANSOPRAZOLE
     Indication: GASTROOESOPHAGEAL REFLUX DISEASE
     Route: 065
     Dates: start: 20030101, end: 20150801
  39. SIMETHICONE (DIMETHICONE) [Concomitant]
     Active Substance: DIMETHICONE

REACTIONS (7)
  - Acute kidney injury [Not Recovered/Not Resolved]
  - Renal disorder [Unknown]
  - Chronic kidney disease [Not Recovered/Not Resolved]
  - End stage renal disease [Not Recovered/Not Resolved]
  - Renal failure [Unknown]
  - Renal injury [Unknown]
  - Tubulointerstitial nephritis [Unknown]

NARRATIVE: CASE EVENT DATE: 2012
